FAERS Safety Report 25702850 (Version 2)
Quarter: 2025Q4

REPORT INFORMATION
  Report Type: Spontaneous
  Country: EU (occurrence: EU)
  Receive Date: 20250819
  Receipt Date: 20251031
  Transmission Date: 20260118
  Serious: Yes (Other)
  Sender: MERCK SHARP & DOHME LLC
  Company Number: EU-CHEPLA-2025009264

PATIENT
  Age: 59 Year
  Sex: Female

DRUGS (5)
  1. PEMBROLIZUMAB [Suspect]
     Active Substance: PEMBROLIZUMAB
     Indication: Anaplastic thyroid cancer
     Dosage: ONGOING
     Route: 065
     Dates: start: 202410
  2. PEMBROLIZUMAB [Suspect]
     Active Substance: PEMBROLIZUMAB
     Indication: Anaplastic thyroid cancer
     Dosage: 3 CYCLES
     Route: 065
     Dates: start: 202311, end: 202401
  3. PEMBROLIZUMAB [Suspect]
     Active Substance: PEMBROLIZUMAB
     Indication: Anaplastic thyroid cancer
     Dosage: 12 CYCLES, MONOTHERAPY
     Route: 065
     Dates: start: 202407
  4. PACLITAXEL [Concomitant]
     Active Substance: PACLITAXEL
     Indication: Anaplastic thyroid cancer
     Dosage: 3 CYCLES
     Route: 065
     Dates: start: 202311, end: 202401
  5. CARBOPLATIN [Concomitant]
     Active Substance: CARBOPLATIN
     Indication: Anaplastic thyroid cancer
     Dosage: AREA UNDER CURVE 5, 3 CYCLES
     Route: 065
     Dates: start: 202311, end: 202401

REACTIONS (4)
  - Neutropenia [Recovered/Resolved]
  - Thrombocytopenia [Recovered/Resolved]
  - Anaemia [Recovered/Resolved]
  - Off label use [Unknown]
